FAERS Safety Report 5022628-0 (Version None)
Quarter: 2006Q2

REPORT INFORMATION
  Report Type: 
  Country: None (occurrence: None)
  Receive Date: 20060605
  Receipt Date: 20060516
  Transmission Date: 20061013
  Serious: Yes (Other)
  Sender: FDA-Public Use
  Company Number: FR200605002123

PATIENT
  Age: 60 Year
  Sex: Male

DRUGS (2)
  1. CIALIS [Suspect]
     Indication: ERECTILE DYSFUNCTION
     Dosage: 20 MG, WEEKLY (1/W), ORAL
     Route: 048
     Dates: start: 20050101, end: 20060101
  2. TARKA [Concomitant]

REACTIONS (2)
  - CHROMATOPSIA [None]
  - VISION BLURRED [None]
